FAERS Safety Report 16962468 (Version 2)
Quarter: 2019Q4

REPORT INFORMATION
  Report Type: Spontaneous
  Country: US (occurrence: US)
  Receive Date: 20191025
  Receipt Date: 20191213
  Transmission Date: 20200122
  Serious: No
  Sender: FDA-Public Use
  Company Number: US-BAYER-2019-191584

PATIENT
  Sex: Male

DRUGS (2)
  1. MIRALAX [Suspect]
     Active Substance: POLYETHYLENE GLYCOL 3350
     Dosage: UNK
     Dates: start: 2011
  2. AMITIZA [Suspect]
     Active Substance: LUBIPROSTONE

REACTIONS (2)
  - Wrong technique in product usage process [None]
  - Therapeutic product effect variable [Unknown]
